FAERS Safety Report 7037366-2 (Version None)
Quarter: 2010Q4

REPORT INFORMATION
  Report Type: 
  Country: None (occurrence: None)
  Receive Date: 20101011
  Receipt Date: 20100930
  Transmission Date: 20110411
  Serious: Yes (Hospitalization)
  Sender: FDA-Public Use
  Company Number: PT-JNJFOC-20101000669

PATIENT
  Age: 36 Year
  Sex: Male

DRUGS (6)
  1. REMICADE [Suspect]
     Indication: BEHCET'S SYNDROME
     Route: 042
  2. REMICADE [Suspect]
     Dosage: STARTED APPROXIMATELY 4 YEARS AGO
     Route: 042
  3. LEPICORTINOLO ST [Concomitant]
  4. LEPICORTINOLO ST [Concomitant]
  5. LEPICORTINOLO ST [Concomitant]
  6. CYCLOSPORINE [Concomitant]

REACTIONS (3)
  - CELLULITIS [None]
  - TOOTH ABSCESS [None]
  - TOOTH EXTRACTION [None]
